FAERS Safety Report 21694708 (Version 1)
Quarter: 2022Q4

REPORT INFORMATION
  Report Type: Spontaneous
  Country: US (occurrence: None)
  Receive Date: 20221207
  Receipt Date: 20221207
  Transmission Date: 20230112
  Serious: Yes (Hospitalization)
  Sender: FDA-Public Use
  Company Number: None

PATIENT
  Age: 67 Year
  Sex: Female
  Weight: 72.6 kg

DRUGS (1)
  1. BELATACEPT [Suspect]
     Active Substance: BELATACEPT
     Indication: Renal transplant
     Dosage: OTHER FREQUENCY : EVERY 28 DAYS;?
     Route: 042
     Dates: start: 20221123

REACTIONS (6)
  - Delayed graft function [None]
  - Haemoptysis [None]
  - Renal tubular injury [None]
  - Intra-abdominal haematoma [None]
  - Arteriosclerosis [None]
  - Complications of transplanted kidney [None]

NARRATIVE: CASE EVENT DATE: 20221203
